FAERS Safety Report 24802171 (Version 2)
Quarter: 2025Q1

REPORT INFORMATION
  Report Type: Spontaneous
  Country: BE (occurrence: BE)
  Receive Date: 20250103
  Receipt Date: 20250110
  Transmission Date: 20250409
  Serious: Yes (Hospitalization, Other)
  Sender: AMNEAL
  Company Number: BE-AMNEAL PHARMACEUTICALS-2024-AMRX-04697

PATIENT
  Sex: Female
  Weight: 76 kg

DRUGS (1)
  1. BACLOFEN [Suspect]
     Active Substance: BACLOFEN
     Indication: Product used for unknown indication
     Route: 037

REACTIONS (6)
  - Vertigo [Unknown]
  - Nausea [Recovered/Resolved]
  - Vomiting [Unknown]
  - Dizziness [Unknown]
  - Leukocytosis [Unknown]
  - Device occlusion [Unknown]

NARRATIVE: CASE EVENT DATE: 20241013
